FAERS Safety Report 19577328 (Version 1)
Quarter: 2021Q3

REPORT INFORMATION
  Report Type: Spontaneous
  Country: US (occurrence: US)
  Receive Date: 20210719
  Receipt Date: 20210719
  Transmission Date: 20211014
  Serious: No
  Sender: FDA-Public Use
  Company Number: US-ALNYLAM PHARMACEUTICALS, INC.-ALN-2021-001670

PATIENT

DRUGS (2)
  1. VITAMIN A [Concomitant]
     Active Substance: VITAMIN A
     Indication: PROPHYLAXIS
     Route: 065
  2. ONPATTRO [Suspect]
     Active Substance: PATISIRAN SODIUM
     Indication: PRODUCT USED FOR UNKNOWN INDICATION
     Route: 065

REACTIONS (1)
  - Vitamin A decreased [Not Recovered/Not Resolved]
